FAERS Safety Report 5905997-6 (Version None)
Quarter: 2008Q4

REPORT INFORMATION
  Report Type: 
  Country: None (occurrence: None)
  Receive Date: 20081002
  Receipt Date: 20080929
  Transmission Date: 20090506
  Serious: Yes (Hospitalization)
  Sender: FDA-Public Use
  Company Number: A0745346A

PATIENT
  Age: 42 Year
  Sex: Female

DRUGS (2)
  1. ALLI [Suspect]
     Indication: WEIGHT LOSS DIET
     Route: 048
     Dates: start: 20080501, end: 20080801
  2. NO CONCURRENT MEDICATION [Concomitant]

REACTIONS (11)
  - ABDOMINAL PAIN UPPER [None]
  - ABNORMAL FAECES [None]
  - DYSGEUSIA [None]
  - EATING DISORDER [None]
  - FAECAL VOMITING [None]
  - INFECTION [None]
  - INTESTINAL OBSTRUCTION [None]
  - NAUSEA [None]
  - PAROSMIA [None]
  - PRODUCT QUALITY ISSUE [None]
  - STEATORRHOEA [None]
